FAERS Safety Report 7813252-2 (Version None)
Quarter: 2011Q4

REPORT INFORMATION
  Report Type: 
  Country: None (occurrence: None)
  Receive Date: 20111013
  Receipt Date: 20111007
  Transmission Date: 20120403
  Serious: Yes (Other)
  Sender: FDA-Public Use
  Company Number: ES-MERCK-1110ESP00015

PATIENT
  Age: 58 Year
  Sex: Male

DRUGS (3)
  1. ZETIA [Suspect]
     Route: 048
     Dates: start: 20080101, end: 20081201
  2. ENALAPRIL MALEATE [Concomitant]
     Route: 065
     Dates: start: 20080101, end: 20081201
  3. ZETIA [Suspect]
     Route: 048
     Dates: start: 20090701, end: 20100101

REACTIONS (3)
  - HEPATITIS ACUTE [None]
  - AUTOIMMUNE HEPATITIS [None]
  - LIVER INJURY [None]
